FAERS Safety Report 6143792-6 (Version None)
Quarter: 2009Q2

REPORT INFORMATION
  Report Type: 
  Country: None (occurrence: None)
  Receive Date: 20090403
  Receipt Date: 20090326
  Transmission Date: 20091009
  Serious: Yes (Other)
  Sender: FDA-Public Use
  Company Number: PHHY2009JP11520

PATIENT
  Sex: Male

DRUGS (3)
  1. ZADITEN [Suspect]
     Indication: ASTHMA
     Route: 048
  2. KIPRES [Concomitant]
     Route: 048
  3. HOKUNALIN [Concomitant]
     Route: 062

REACTIONS (2)
  - CONVULSION [None]
  - PYREXIA [None]
